FAERS Safety Report 14901775 (Version 1)
Quarter: 2018Q2

REPORT INFORMATION
  Report Type: Report from Study
  Country: PA (occurrence: PA)
  Receive Date: 20180516
  Receipt Date: 20180516
  Transmission Date: 20180711
  Serious: Yes (Hospitalization)
  Sender: FDA-Public Use
  Company Number: PA-PFIZER INC-2018200771

PATIENT
  Age: 40 Year
  Sex: Female
  Weight: 51.7 kg

DRUGS (7)
  1. BOLARIA [Concomitant]
     Dosage: UNK
  2. TAFIL [Concomitant]
     Active Substance: ALPRAZOLAM
     Dosage: UNK
  3. VONTROL [Concomitant]
     Active Substance: DIPHENIDOL HYDROCHLORIDE
     Dosage: UNK
  4. GILENYA [Suspect]
     Active Substance: FINGOLIMOD HYDROCHLORIDE
     Indication: MULTIPLE SCLEROSIS
     Dosage: 0.5 MG, UNK
     Route: 065
     Dates: start: 20180319
  5. ACYCLOVIR. [Concomitant]
     Active Substance: ACYCLOVIR
     Dosage: UNK
  6. PREDNISONE. [Concomitant]
     Active Substance: PREDNISONE
     Dosage: UNK
  7. PANTOPRAZOLE [Suspect]
     Active Substance: PANTOPRAZOLE
     Dosage: 40 MG, BID
     Route: 065

REACTIONS (8)
  - Fatigue [Unknown]
  - Nasopharyngitis [Unknown]
  - Asthenia [Unknown]
  - Dizziness [Unknown]
  - Chills [Unknown]
  - Decreased appetite [Unknown]
  - Nausea [Unknown]
  - Bronchitis [Recovering/Resolving]

NARRATIVE: CASE EVENT DATE: 20180410
